FAERS Safety Report 4669995-5 (Version None)
Quarter: 2005Q2

REPORT INFORMATION
  Report Type: 
  Country: None (occurrence: None)
  Receive Date: 20050523
  Receipt Date: 20050506
  Transmission Date: 20051028
  Serious: Yes (Hospitalization)
  Sender: FDA-Public Use
  Company Number: US015226

PATIENT
  Age: 48 Year
  Sex: Female

DRUGS (9)
  1. GABITRIL [Suspect]
     Indication: ANXIETY
     Dosage: 4 MG QHS ORAL; 12 MG QHS ORAL; 24 MG QHS ORAL
     Route: 048
     Dates: start: 20040101, end: 20041201
  2. GABITRIL [Suspect]
     Indication: ANXIETY
     Dosage: 4 MG QHS ORAL; 12 MG QHS ORAL; 24 MG QHS ORAL
     Route: 048
     Dates: start: 20041201, end: 20050401
  3. GABITRIL [Suspect]
     Indication: ANXIETY
     Dosage: 4 MG QHS ORAL; 12 MG QHS ORAL; 24 MG QHS ORAL
     Route: 048
     Dates: start: 20040901
  4. XANAX [Concomitant]
  5. EFFEXOR XR [Concomitant]
  6. PRAVACHOL [Concomitant]
  7. FIORICET [Concomitant]
  8. SYMBYAX [Concomitant]
  9. ACTONEL [Concomitant]

REACTIONS (1)
  - GRAND MAL CONVULSION [None]
